FAERS Safety Report 24693732 (Version 2)
Quarter: 2024Q4

REPORT INFORMATION
  Report Type: Spontaneous
  Country: US (occurrence: US)
  Receive Date: 20241204
  Receipt Date: 20241210
  Transmission Date: 20250115
  Serious: Yes (Other)
  Sender: GLAUKOS
  Company Number: US-GLK-002399

PATIENT
  Age: 33 Year
  Sex: Male

DRUGS (2)
  1. PHOTREXA [Suspect]
     Active Substance: RIBOFLAVIN 5^-PHOSPHATE SODIUM
     Indication: Keratoconus
     Dosage: LEFT EYE (OS)
     Route: 047
     Dates: start: 20241015, end: 20241015
  2. PHOTREXA VISCOUS [Suspect]
     Active Substance: RIBOFLAVIN 5^-PHOSPHATE SODIUM
     Indication: Keratoconus
     Dosage: LEFT EYE (OS)
     Route: 047
     Dates: start: 20241015, end: 20241015

REACTIONS (9)
  - Visual impairment [Recovering/Resolving]
  - Visual acuity reduced [Recovering/Resolving]
  - Corneal oedema [Recovering/Resolving]
  - Ulcerative keratitis [Recovering/Resolving]
  - Eye pain [Recovering/Resolving]
  - Corneal oedema [Recovering/Resolving]
  - Corneal opacity [Recovering/Resolving]
  - Metamorphopsia [Recovering/Resolving]
  - Herpes simplex [Recovering/Resolving]

NARRATIVE: CASE EVENT DATE: 20241021
